FAERS Safety Report 6435798-4 (Version None)
Quarter: 2009Q4

REPORT INFORMATION
  Report Type: 
  Country: None (occurrence: None)
  Receive Date: 20091111
  Receipt Date: 20091106
  Transmission Date: 20100525
  Serious: Yes (Death)
  Sender: FDA-Public Use
  Company Number: TW-BRISTOL-MYERS SQUIBB COMPANY-14820971

PATIENT
  Age: 70 Year
  Sex: Male
  Weight: 47 kg

DRUGS (10)
  1. CISPLATIN [Suspect]
     Indication: NON-SMALL CELL LUNG CANCER STAGE III
     Dosage: RECENT DOSE:05OCT09 D1 +D8
     Route: 065
     Dates: start: 20090907
  2. ETOPOSIDE [Suspect]
     Indication: NON-SMALL CELL LUNG CANCER STAGE III
     Dosage: RECENT DOSE:09OCT09 D1-D5
     Route: 065
     Dates: start: 20090907
  3. RADIATION THERAPY [Suspect]
     Indication: NON-SMALL CELL LUNG CANCER STAGE III
     Dosage: 1 DF=66GY 33 FX RECENT DOSE:09OCT09
     Route: 065
     Dates: start: 20090909
  4. FOLIC ACID [Concomitant]
     Indication: PROPHYLAXIS
     Dates: start: 20090827
  5. PROCHLORPERAZINE [Concomitant]
     Dates: start: 20091005, end: 20091005
  6. APREPITANT [Concomitant]
     Dates: start: 20091005, end: 20091009
  7. DEXAMETHASONE [Concomitant]
     Indication: PREMEDICATION
     Dates: start: 20091005, end: 20091005
  8. FLUDIAZEPAM [Concomitant]
     Indication: INSOMNIA
     Dates: start: 20091001, end: 20091010
  9. CIMETIDINE [Concomitant]
     Indication: ABDOMINAL DISTENSION
     Dates: start: 20091001, end: 20091010
  10. GRANISETRON HCL [Concomitant]
     Dates: start: 20091005, end: 20091005

REACTIONS (5)
  - ACUTE RESPIRATORY FAILURE [None]
  - FEBRILE NEUTROPENIA [None]
  - PNEUMONIA [None]
  - RENAL FAILURE ACUTE [None]
  - SEPTIC SHOCK [None]
